FAERS Safety Report 17941160 (Version 1)
Quarter: 2020Q2

REPORT INFORMATION
  Report Type: Spontaneous
  Country: CA (occurrence: CA)
  Receive Date: 20200624
  Receipt Date: 20200624
  Transmission Date: 20200714
  Serious: Yes (Other)
  Sender: FDA-Public Use
  Company Number: CA-NALPROPION PHARMACEUTICALS INC.-2020-010505

PATIENT

DRUGS (3)
  1. CONTRAVE [Suspect]
     Active Substance: BUPROPION HYDROCHLORIDE\NALTREXONE HYDROCHLORIDE
     Dosage: REDUCED DOSE, 90/8 MG (1 DOSAGE FORMS, 2 IN 1 D)
     Route: 048
  2. CONTRAVE [Suspect]
     Active Substance: BUPROPION HYDROCHLORIDE\NALTREXONE HYDROCHLORIDE
     Indication: WEIGHT CONTROL
     Dosage: 90/8 MG
     Route: 048
  3. CONTRAVE [Suspect]
     Active Substance: BUPROPION HYDROCHLORIDE\NALTREXONE HYDROCHLORIDE
     Dosage: RESTARTED TREATMENT, 90/8 MG (2 DOSAGE FORMS, 2 IN 1 D)
     Route: 048

REACTIONS (5)
  - Drug titration error [Unknown]
  - Seizure [Recovered/Resolved]
  - Muscle spasms [Recovered/Resolved]
  - Dyskinesia [Recovered/Resolved]
  - Weight increased [Recovered/Resolved]
